FAERS Safety Report 4611782-8 (Version None)
Quarter: 2005Q1

REPORT INFORMATION
  Report Type: 
  Country: None (occurrence: None)
  Receive Date: 20050317
  Receipt Date: 20050222
  Transmission Date: 20050727
  Serious: Yes (Other)
  Sender: FDA-Public Use
  Company Number: PHBS2005JP02746

PATIENT
  Age: 17 Year
  Sex: Female
  Weight: 67 kg

DRUGS (8)
  1. PROGRAF [Concomitant]
     Indication: RENAL TRANSPLANT
     Dosage: 5 MG/DAY
     Route: 042
     Dates: start: 20050215
  2. METHYLPREDNISOLONE [Concomitant]
     Indication: RENAL TRANSPLANT
     Dosage: 500 MG/DAY
     Route: 042
     Dates: start: 20050216
  3. SIMULECT [Suspect]
     Indication: RENAL TRANSPLANT
     Dosage: 20 MG, ONCE/SINGLE
     Route: 042
     Dates: start: 20050216, end: 20050216
  4. SOLDEM 1 [Concomitant]
     Route: 042
     Dates: start: 20050216
  5. DOPAMINE [Concomitant]
     Dosage: UNK, UNK
     Route: 042
     Dates: start: 20050216
  6. HANP [Concomitant]
     Route: 042
     Dates: start: 20050216
  7. BLOOD TRANSFUSION, AUXILIARY PRODUCTS [Concomitant]
     Dates: start: 20050216
  8. ALBUMIN (HUMAN) [Concomitant]
     Dates: start: 20050216

REACTIONS (6)
  - ANAPHYLACTIC REACTION [None]
  - BLOOD PRESSURE DECREASED [None]
  - DIALYSIS [None]
  - OBSTRUCTIVE AIRWAYS DISORDER [None]
  - PO2 DECREASED [None]
  - RASH [None]
